FAERS Safety Report 25834218 (Version 2)
Quarter: 2025Q4

REPORT INFORMATION
  Report Type: Spontaneous
  Country: US (occurrence: US)
  Receive Date: 20250923
  Receipt Date: 20251027
  Transmission Date: 20260117
  Serious: No
  Sender: BRISTOL-MYERS SQUIBB COMPANY
  Company Number: US-BRISTOL-MYERS SQUIBB COMPANY-2025-130175

PATIENT
  Age: 85 Year
  Sex: Male

DRUGS (1)
  1. IDHIFA [Suspect]
     Active Substance: ENASIDENIB MESYLATE
     Indication: Acute myeloid leukaemia
     Dosage: 100MG DAILY
     Route: 048
     Dates: start: 20250904

REACTIONS (7)
  - Fatigue [Unknown]
  - Malaise [Recovering/Resolving]
  - Weight increased [Unknown]
  - Haemoglobin abnormal [Unknown]
  - Urticaria [Unknown]
  - Memory impairment [Unknown]
  - Rash [Unknown]
